FAERS Safety Report 4604871-5 (Version None)
Quarter: 2005Q1

REPORT INFORMATION
  Report Type: 
  Country: None (occurrence: None)
  Receive Date: 20050311
  Receipt Date: 20050308
  Transmission Date: 20050727
  Serious: Yes (Other)
  Sender: FDA-Public Use
  Company Number: 200510851FR

PATIENT
  Age: 55 Year
  Sex: Female

DRUGS (4)
  1. ARAVA [Suspect]
     Indication: RHEUMATOID ARTHRITIS
     Route: 048
     Dates: start: 20040101, end: 20050308
  2. CORTANCYL [Concomitant]
     Route: 048
  3. LEVOTHYROX [Concomitant]
     Route: 048
  4. NSAID'S [Concomitant]

REACTIONS (2)
  - NEOPLASM RECURRENCE [None]
  - THYROID GLAND CANCER [None]
